FAERS Safety Report 4748389-8 (Version None)
Quarter: 2005Q3

REPORT INFORMATION
  Report Type: 
  Country: None (occurrence: None)
  Receive Date: 20050815
  Receipt Date: 20050531
  Transmission Date: 20060218
  Serious: No
  Sender: FDA-Public Use
  Company Number: USA050495523

PATIENT
  Age: 77 Year
  Sex: Male

DRUGS (5)
  1. CIALIS [Suspect]
     Dosage: 20 MG
     Dates: start: 20050411, end: 20050401
  2. VALSARTAN [Concomitant]
  3. FLOMAX [Concomitant]
  4. ZOCOR (SIMVASTATIN RATIOPHARM) [Concomitant]
  5. ECOTRIN (ACETYLSALICYLIC ACID) [Concomitant]

REACTIONS (10)
  - DYSPEPSIA [None]
  - DYSPHAGIA [None]
  - DYSPNOEA [None]
  - FLUSHING [None]
  - INSOMNIA [None]
  - JOINT STIFFNESS [None]
  - MYALGIA [None]
  - NAUSEA [None]
  - PARAESTHESIA [None]
  - VOMITING [None]
